FAERS Safety Report 9254447 (Version 1)
Quarter: 2013Q2

REPORT INFORMATION
  Report Type: Spontaneous
  Country: US (occurrence: None)
  Receive Date: 20130422
  Receipt Date: 20130422
  Transmission Date: 20140414
  Serious: Yes (Other)
  Sender: FDA-Public Use
  Company Number: None

PATIENT
  Age: 66 Year
  Sex: Female
  Weight: 75.3 kg

DRUGS (1)
  1. MARCAIN [Suspect]
     Indication: THERAPEUTIC PROCEDURE
     Route: 024
     Dates: start: 20130416, end: 20130416

REACTIONS (1)
  - No therapeutic response [None]
